FAERS Safety Report 8625039-1 (Version None)
Quarter: 2012Q3

REPORT INFORMATION
  Report Type: 
  Country: None (occurrence: None)
  Receive Date: 20120827
  Receipt Date: 20120822
  Transmission Date: 20120928
  Serious: Yes (Life-Threatening, Other)
  Sender: FDA-Public Use
  Company Number: US-ELI_LILLY_AND_COMPANY-US201208006928

PATIENT
  Sex: Female

DRUGS (4)
  1. ANGIOMAX [Concomitant]
  2. HEPARIN SODIUM [Concomitant]
  3. EFFIENT [Suspect]
     Indication: STENT PLACEMENT
     Dosage: UNK
     Dates: start: 20120821
  4. INTEGRILIN [Concomitant]

REACTIONS (3)
  - HAEMORRHAGE [None]
  - COMA [None]
  - SUBDURAL HAEMATOMA [None]
